FAERS Safety Report 21174468 (Version 2)
Quarter: 2022Q3

REPORT INFORMATION
  Report Type: Report from Study
  Country: US (occurrence: US)
  Receive Date: 20220804
  Receipt Date: 20220922
  Transmission Date: 20221026
  Serious: Yes (Hospitalization, Other)
  Sender: FDA-Public Use
  Company Number: US-BRISTOL-MYERS SQUIBB COMPANY-2022-068864

PATIENT
  Age: 67 Year
  Sex: Male
  Weight: 113.3 kg

DRUGS (4)
  1. REVLIMID [Suspect]
     Active Substance: LENALIDOMIDE
     Indication: Plasma cell myeloma
     Dosage: DAILY FOR 21 DAYS FOLLOWED BY 7DAYS OFF
     Route: 048
     Dates: start: 202201
  2. REVLIMID [Suspect]
     Active Substance: LENALIDOMIDE
     Dosage: DAILY 21 DAYS
     Route: 048
     Dates: start: 20220328
  3. REVLIMID [Suspect]
     Active Substance: LENALIDOMIDE
     Route: 048
  4. NINLARO [Concomitant]
     Active Substance: IXAZOMIB CITRATE

REACTIONS (3)
  - Abscess jaw [Unknown]
  - Gastrointestinal stromal tumour [Unknown]
  - Insomnia [Unknown]

NARRATIVE: CASE EVENT DATE: 20220517
